FAERS Safety Report 14259155 (Version 2)
Quarter: 2024Q1

REPORT INFORMATION
  Report Type: Spontaneous
  Country: US (occurrence: None)
  Receive Date: 20171207
  Receipt Date: 20240219
  Transmission Date: 20240410
  Serious: Yes (Death, Hospitalization)
  Sender: FDA-Public Use
  Company Number: 2017SF22337

PATIENT
  Age: 69 Year
  Sex: Female

DRUGS (8)
  1. ESOMEPRAZOLE [Suspect]
     Active Substance: ESOMEPRAZOLE
     Route: 048
  2. LISINOPRIL [Suspect]
     Active Substance: LISINOPRIL
     Route: 048
  3. AMLODIPINE [Suspect]
     Active Substance: AMLODIPINE BESYLATE
     Route: 048
  4. DILTIAZEM [Suspect]
     Active Substance: DILTIAZEM
     Route: 048
  5. ACETAMINOPHEN\OXYCODONE HYDROCHLORIDE [Suspect]
     Active Substance: ACETAMINOPHEN\OXYCODONE HYDROCHLORIDE
     Route: 048
  6. DIAZEPAM [Suspect]
     Active Substance: DIAZEPAM
     Route: 048
  7. MIRTAZAPINE [Suspect]
     Active Substance: MIRTAZAPINE
     Route: 048
  8. FAMOTIDINE [Suspect]
     Active Substance: FAMOTIDINE
     Route: 048

REACTIONS (2)
  - Toxicity to various agents [Fatal]
  - Completed suicide [Fatal]

NARRATIVE: CASE EVENT DATE: 20160101
